FAERS Safety Report 24841386 (Version 1)
Quarter: 2025Q1

REPORT INFORMATION
  Report Type: Spontaneous
  Country: US (occurrence: None)
  Receive Date: 20250113
  Receipt Date: 20250113
  Transmission Date: 20250409
  Serious: No
  Sender: FDA-CTU
  Company Number: None

PATIENT
  Age: 49 Year
  Sex: Female
  Weight: 62.14 kg

DRUGS (13)
  1. LILETTA [Suspect]
     Active Substance: LEVONORGESTREL
     Dates: start: 20250103, end: 20250113
  2. cromolyn sodium-oral [Concomitant]
  3. CLARITIN [Concomitant]
     Active Substance: LORATADINE
  4. DAO ENZYME [Concomitant]
  5. VITAMIN B-COMPLEX [Concomitant]
     Active Substance: DEXPANTHENOL\NIACINAMIDE\PYRIDOXINE HYDROCHLORIDE\RIBOFLAVIN 5^-PHOSPHATE SODIUM\THIAMINE HYDROCHLOR
  6. VITAMIN C [Concomitant]
     Active Substance: ASCORBIC ACID
  7. VITAMIN D [Concomitant]
     Active Substance: VITAMIN D NOS
  8. ZINC [Concomitant]
     Active Substance: ZINC
  9. MAGNESIUM [Concomitant]
     Active Substance: MAGNESIUM
  10. CALCIUM [Concomitant]
     Active Substance: CALCIUM
  11. CROMOLYN SODIUM NASAL SPRAY [Concomitant]
  12. LACTASE [Concomitant]
     Active Substance: LACTASE
  13. BEANO [Concomitant]
     Active Substance: ASPERGILLUS NIGER .ALPHA.-GALACTOSIDASE

REACTIONS (8)
  - Headache [None]
  - Flushing [None]
  - Anxiety [None]
  - Panic disorder [None]
  - Chest discomfort [None]
  - Disturbance in attention [None]
  - Coordination abnormal [None]
  - Fall [None]

NARRATIVE: CASE EVENT DATE: 20250103
